FAERS Safety Report 5446327-6 (Version None)
Quarter: 2007Q3

REPORT INFORMATION
  Report Type: 
  Country: None (occurrence: None)
  Receive Date: 20070907
  Receipt Date: 20070828
  Transmission Date: 20080115
  Serious: Yes (Hospitalization)
  Sender: FDA-Public Use
  Company Number: JP-ROCHE-499965

PATIENT
  Age: 76 Year
  Sex: Female

DRUGS (2)
  1. TICLOPIDINE HCL [Suspect]
     Route: 048
  2. ASPIRIN [Concomitant]
     Route: 048

REACTIONS (2)
  - ANAEMIA [None]
  - DIVERTICULUM INTESTINAL HAEMORRHAGIC [None]
